FAERS Safety Report 15514503 (Version 2)
Quarter: 2019Q1

REPORT INFORMATION
  Report Type: Spontaneous
  Country: US (occurrence: US)
  Receive Date: 20181016
  Receipt Date: 20190305
  Transmission Date: 20190417
  Serious: No
  Sender: FDA-Public Use
  Company Number: US-AMGEN-USASP2018132145

PATIENT
  Age: 67 Year
  Sex: Male

DRUGS (4)
  1. NEULASTA [Suspect]
     Active Substance: PEGFILGRASTIM
     Indication: PRODUCT USED FOR UNKNOWN INDICATION
     Dosage: UNK UNK, CYCLICAL (ON DAY 4 OF 14 DAY CYCLE)
     Route: 065
  2. IRINOTECAN [Concomitant]
     Active Substance: IRINOTECAN
     Indication: COLORECTAL CANCER METASTATIC
     Dosage: UNK UNK, CYCLICAL (ON DAY 1 OF A 14 DAY CYCLE)
     Route: 065
  3. 5-FU [Concomitant]
     Active Substance: FLUOROURACIL
     Indication: COLORECTAL CANCER METASTATIC
     Dosage: UNK UNK, CYCLICAL (ON DAY 2-3 OF A 14 DAY CYCLE)
  4. NEULASTA [Suspect]
     Active Substance: PEGFILGRASTIM
     Dosage: REDUCED DOSE
     Route: 065

REACTIONS (12)
  - Muscle tightness [Not Recovered/Not Resolved]
  - Seasonal allergy [Recovering/Resolving]
  - Blood count abnormal [Unknown]
  - Hiccups [Not Recovered/Not Resolved]
  - Insomnia [Unknown]
  - White blood cell disorder [Not Recovered/Not Resolved]
  - Blood pressure abnormal [Not Recovered/Not Resolved]
  - Temperature intolerance [Not Recovered/Not Resolved]
  - Pain in extremity [Not Recovered/Not Resolved]
  - Tenderness [Not Recovered/Not Resolved]
  - Blood disorder [Not Recovered/Not Resolved]
  - Cognitive disorder [Unknown]
